FAERS Safety Report 6149021-1 (Version None)
Quarter: 2009Q2

REPORT INFORMATION
  Report Type: 
  Country: None (occurrence: None)
  Receive Date: 20090406
  Receipt Date: 20090323
  Transmission Date: 20091009
  Serious: Yes (Other)
  Sender: FDA-Public Use
  Company Number: 2009AL001331

PATIENT
  Age: 69 Year
  Sex: Female

DRUGS (7)
  1. PAREGORIC LIQUID [Suspect]
  2. FENTANYL [Suspect]
     Route: 062
  3. CYCLOPHOSPHAMIDE [Concomitant]
  4. VELCADE [Concomitant]
  5. DECADRON [Concomitant]
  6. LEVOTHYROXINE SODIUM [Concomitant]
  7. UNKNOWN [Concomitant]

REACTIONS (6)
  - ABDOMINAL PAIN UPPER [None]
  - DRUG WITHDRAWAL SYNDROME [None]
  - FEELING COLD [None]
  - MUSCLE TWITCHING [None]
  - RASH PRURITIC [None]
  - TREMOR [None]
